FAERS Safety Report 20624650 (Version 5)
Quarter: 2023Q1

REPORT INFORMATION
  Report Type: Report from Study
  Country: JP (occurrence: JP)
  Receive Date: 20220322
  Receipt Date: 20230207
  Transmission Date: 20230418
  Serious: Yes (Hospitalization)
  Sender: FDA-Public Use
  Company Number: JP-ABBVIE-22K-087-4323427-00

PATIENT
  Age: 68 Year
  Sex: Female
  Weight: 52 kg

DRUGS (6)
  1. RINVOQ [Suspect]
     Active Substance: UPADACITINIB
     Indication: Rheumatoid arthritis
     Route: 048
     Dates: start: 20210125, end: 2021
  2. RINVOQ [Suspect]
     Active Substance: UPADACITINIB
     Indication: Rheumatoid arthritis
     Dosage: FOR 3 DAYS
     Route: 048
     Dates: start: 20210222, end: 2021
  3. RINVOQ [Suspect]
     Active Substance: UPADACITINIB
     Indication: Rheumatoid arthritis
     Dosage: 7.5 MILLIGRAM
     Route: 048
     Dates: start: 20210517
  4. MINODRONIC ACID 50 mg [Concomitant]
     Indication: Product used for unknown indication
     Dosage: 4 WEEKS
     Route: 048
  5. Rabeprazole sodium 10 Milligram [Concomitant]
     Indication: Product used for unknown indication
     Route: 048
  6. Rabeprazole sodium 10 Milligram [Concomitant]
     Indication: Product used for unknown indication
     Route: 048

REACTIONS (3)
  - Colitis ischaemic [Recovered/Resolved]
  - Diverticulitis [Recovered/Resolved]
  - Herpes zoster [Recovered/Resolved]

NARRATIVE: CASE EVENT DATE: 20210311
